FAERS Safety Report 6069217-7 (Version None)
Quarter: 2009Q1

REPORT INFORMATION
  Report Type: 
  Country: None (occurrence: None)
  Receive Date: 20090206
  Receipt Date: 20090127
  Transmission Date: 20090719
  Serious: Yes (Other)
  Sender: FDA-Public Use
  Company Number: PHEH2009US01392

PATIENT
  Sex: Female
  Weight: 52.154 kg

DRUGS (4)
  1. SANDOSTATIN [Suspect]
     Indication: NEUROENDOCRINE CARCINOMA
     Dosage: UNK
     Dates: start: 20070601
  2. SYNTHROID [Concomitant]
     Indication: THYROIDECTOMY
     Dosage: 125 MCG DAILY
     Route: 048
     Dates: start: 20070501
  3. OCTREOTIDE ACETATE [Concomitant]
     Indication: NEUROENDOCRINE CARCINOMA
     Dosage: UNK
     Route: 030
     Dates: start: 20070601
  4. ERGOCALCIFEROL [Concomitant]
     Indication: VITAMIN D DEFICIENCY

REACTIONS (2)
  - COELIAC DISEASE [None]
  - COLITIS MICROSCOPIC [None]
